FAERS Safety Report 15453936 (Version 2)
Quarter: 2018Q4

REPORT INFORMATION
  Report Type: Spontaneous
  Country: AU (occurrence: AU)
  Receive Date: 20181002
  Receipt Date: 20181126
  Transmission Date: 20190204
  Serious: Yes (Other)
  Sender: FDA-Public Use
  Company Number: AU-ROCHE-2191322

PATIENT
  Age: 63 Year
  Sex: Female
  Weight: 89 kg

DRUGS (1)
  1. ACTEMRA [Suspect]
     Active Substance: TOCILIZUMAB
     Indication: PATELLOFEMORAL PAIN SYNDROME
     Route: 058
     Dates: start: 20180620, end: 20180920

REACTIONS (7)
  - Feeling abnormal [Unknown]
  - Back pain [Unknown]
  - Dizziness [Unknown]
  - Intentional product use issue [Unknown]
  - Dissociative disorder [Unknown]
  - Deafness [Unknown]
  - Off label use [Unknown]

NARRATIVE: CASE EVENT DATE: 201807
